FAERS Safety Report 10388274 (Version 1)
Quarter: 2014Q3

REPORT INFORMATION
  Report Type: Spontaneous
  Country: US (occurrence: US)
  Receive Date: 20140815
  Receipt Date: 20140815
  Transmission Date: 20150326
  Serious: No
  Sender: FDA-Public Use
  Company Number: US-BAYER-2014-120100

PATIENT
  Sex: Female

DRUGS (2)
  1. CITRACAL CALCIUM + D SLOW RELEASE 1200 [Suspect]
     Active Substance: CALCIUM CITRATE
     Dosage: 2 DF, QD
     Route: 048
     Dates: start: 2014
  2. ALEVE [Suspect]
     Active Substance: NAPROXEN SODIUM

REACTIONS (2)
  - Wrong technique in drug usage process [None]
  - Abdominal discomfort [Not Recovered/Not Resolved]

NARRATIVE: CASE EVENT DATE: 2014
